FAERS Safety Report 15822366 (Version 1)
Quarter: 2019Q1

REPORT INFORMATION
  Report Type: Spontaneous
  Country: US (occurrence: US)
  Receive Date: 20190114
  Receipt Date: 20190114
  Transmission Date: 20190417
  Serious: Yes (Other)
  Sender: FDA-Public Use
  Company Number: None

PATIENT
  Age: 71 Year
  Sex: Female
  Weight: 96.3 kg

DRUGS (19)
  1. LINZESS [Concomitant]
     Active Substance: LINACLOTIDE
  2. DOCUSATE SODIUM. [Concomitant]
     Active Substance: DOCUSATE SODIUM
  3. MOVANTIK [Suspect]
     Active Substance: NALOXEGOL OXALATE
     Indication: CONSTIPATION
     Dosage: ?          QUANTITY:1 TABLET(S);?
     Route: 048
     Dates: start: 20181103, end: 20181108
  4. LASIX [Concomitant]
     Active Substance: FUROSEMIDE
  5. PROCHLORPERAZINE. [Concomitant]
     Active Substance: PROCHLORPERAZINE
  6. LACTULOSE SOLUTION [Concomitant]
     Active Substance: LACTULOSE
  7. CYCLOBENZAPRINE. [Concomitant]
     Active Substance: CYCLOBENZAPRINE
  8. LIDOCAINE PATCH [Concomitant]
     Active Substance: LIDOCAINE
  9. ECHINACEA [Concomitant]
     Active Substance: ECHINACEA, UNSPECIFIED
  10. METOPROLOL. [Concomitant]
     Active Substance: METOPROLOL
  11. ALPRAZOLAM. [Concomitant]
     Active Substance: ALPRAZOLAM
  12. OXYCONTIN [Concomitant]
     Active Substance: OXYCODONE HYDROCHLORIDE
  13. PERCOCET [Concomitant]
     Active Substance: ACETAMINOPHEN\OXYCODONE HYDROCHLORIDE
  14. XARELTO [Concomitant]
     Active Substance: RIVAROXABAN
  15. LIDOCAINE JELLY [Concomitant]
     Active Substance: LIDOCAINE
  16. TRIAMCINOLONE CREAM [Concomitant]
     Active Substance: TRIAMCINOLONE
  17. VITAMIN C [Concomitant]
     Active Substance: ASCORBIC ACID
  18. ODANSETRON HCL [Concomitant]
  19. ZOLPIDEM [Concomitant]
     Active Substance: ZOLPIDEM\ZOLPIDEM TARTRATE

REACTIONS (2)
  - Pain [None]
  - Inadequate analgesia [None]

NARRATIVE: CASE EVENT DATE: 20181103
